FAERS Safety Report 5303261-X (Version None)
Quarter: 2007Q2

REPORT INFORMATION
  Report Type: 
  Country: None (occurrence: None)
  Receive Date: 20070420
  Receipt Date: 20070411
  Transmission Date: 20071010
  Serious: Yes (Other)
  Sender: FDA-Public Use
  Company Number: SK-GENENTECH-239941

PATIENT
  Sex: Female

DRUGS (6)
  1. XOLAIR [Suspect]
     Indication: ASTHMA
     Dosage: 200 MG, 1/MONTH
     Dates: start: 20060627, end: 20070206
  2. SINGULAIR [Concomitant]
     Indication: DRUG USE FOR UNKNOWN INDICATION
  3. BERODUAL [Concomitant]
     Indication: DRUG USE FOR UNKNOWN INDICATION
  4. MEDROL [Concomitant]
     Indication: DRUG USE FOR UNKNOWN INDICATION
  5. RANISAN [Concomitant]
     Indication: DRUG USE FOR UNKNOWN INDICATION
  6. CETIRIZINE HYDROCHLORIDE [Concomitant]
     Indication: DRUG USE FOR UNKNOWN INDICATION

REACTIONS (5)
  - BLOOD PRESSURE DECREASED [None]
  - CIRCULATORY COLLAPSE [None]
  - DRY MOUTH [None]
  - HYPERHIDROSIS [None]
  - TREMOR [None]
